FAERS Safety Report 7943038-X (Version None)
Quarter: 2011Q4

REPORT INFORMATION
  Report Type: 
  Country: None (occurrence: None)
  Receive Date: 20111128
  Receipt Date: 20111125
  Transmission Date: 20120403
  Serious: Yes (Death)
  Sender: FDA-Public Use
  Company Number: AU-B.I. PHARMACEUTICALS,INC./RIDGEFIELD-2011-AU-02204AU

PATIENT
  Sex: Male
  Weight: 65 kg

DRUGS (14)
  1. VENTOLIN [Concomitant]
  2. FLUTICASONE PROPIONATE/SALMETEROL [Concomitant]
  3. PRADAXA [Suspect]
     Indication: CEREBROVASCULAR ACCIDENT PROPHYLAXIS
     Dosage: 220 MG
     Dates: start: 20110712
  4. DURIDE [Concomitant]
     Dosage: 60 MG
  5. PRADAXA [Suspect]
     Indication: ATRIAL FIBRILLATION
  6. DITROPAN [Concomitant]
     Dosage: 15 MG
  7. RABEPRAZOLE SODIUM [Concomitant]
     Dosage: 40 MG
  8. SIMVASTATIN [Concomitant]
     Dosage: 20 MG
  9. ALPHAPRESS [Concomitant]
     Dosage: 25 MG
  10. INDERAL [Concomitant]
     Dosage: 120 MG
  11. ZYLOPRIM [Concomitant]
     Dosage: 100 MG
  12. LASIX [Concomitant]
     Dosage: 40 MG
  13. PERINDOPRIL ERBUMINE [Concomitant]
     Dosage: 4 MG
  14. DIGOXIN [Concomitant]
     Dosage: 625 MCG

REACTIONS (1)
  - ACUTE MYOCARDIAL INFARCTION [None]
